FAERS Safety Report 5038485-2 (Version None)
Quarter: 2006Q2

REPORT INFORMATION
  Report Type: 
  Country: None (occurrence: None)
  Receive Date: 20060601
  Receipt Date: 20060314
  Transmission Date: 20061013
  Serious: No
  Sender: FDA-Public Use
  Company Number: 2006PV010209

PATIENT
  Age: 65 Year
  Sex: Male
  Weight: 117.9352 kg

DRUGS (6)
  1. BYETTA [Suspect]
     Indication: DIABETES MELLITUS NON-INSULIN-DEPENDENT
     Dosage: SEE IMAGE
     Route: 058
     Dates: start: 20050101, end: 20050101
  2. BYETTA [Suspect]
     Indication: DIABETES MELLITUS NON-INSULIN-DEPENDENT
     Dosage: SEE IMAGE
     Route: 058
     Dates: start: 20050101
  3. HUMULIN U [Concomitant]
  4. HUMALOG [Concomitant]
  5. PLAVIX [Concomitant]
  6. ASPIRIN [Concomitant]

REACTIONS (1)
  - INJECTION SITE HAEMORRHAGE [None]
